FAERS Safety Report 10066679 (Version 2)
Quarter: 2014Q2

REPORT INFORMATION
  Report Type: Spontaneous
  Country: DE (occurrence: DE)
  Receive Date: 20140408
  Receipt Date: 20140408
  Transmission Date: 20141212
  Serious: Yes (Other)
  Sender: FDA-Public Use
  Company Number: PHHY2014DE013043

PATIENT
  Sex: Female

DRUGS (1)
  1. IMMUNOSPORIN [Suspect]
     Indication: PSORIASIS
     Dosage: 100 MG- 0- 150 MG
     Route: 048
     Dates: start: 201301

REACTIONS (2)
  - Abortion spontaneous [Unknown]
  - Maternal exposure during pregnancy [Unknown]
